FAERS Safety Report 18303373 (Version 2)
Quarter: 2024Q1

REPORT INFORMATION
  Report Type: Spontaneous
  Country: AU (occurrence: AU)
  Receive Date: 20200924
  Receipt Date: 20240315
  Transmission Date: 20240410
  Serious: Yes (Hospitalization, Other)
  Sender: FDA-Public Use
  Company Number: AU-SUN PHARMACEUTICAL INDUSTRIES LTD-2020RR-261197

PATIENT
  Age: 26 Year
  Sex: Female

DRUGS (6)
  1. ESCITALOPRAM [Suspect]
     Active Substance: ESCITALOPRAM OXALATE
     Indication: Obsessive-compulsive symptom
     Dosage: GRADUALLY UP-TITRATED FROM 10 MG TO 70 MG DAILY
     Route: 065
  2. METHYLPHENIDATE [Suspect]
     Active Substance: METHYLPHENIDATE
     Indication: Obsessive-compulsive symptom
     Dosage: 5 MILLIGRAM, DAILY
     Route: 065
  3. MIRTAZAPINE [Suspect]
     Active Substance: MIRTAZAPINE
     Indication: Obsessive-compulsive symptom
     Dosage: 7.5 MILLIGRAM, DAILY
     Route: 065
  4. PRAMIPEXOLE [Suspect]
     Active Substance: PRAMIPEXOLE\PRAMIPEXOLE DIHYDROCHLORIDE
     Indication: Obsessive-compulsive symptom
     Dosage: UNK
     Route: 065
  5. RISPERIDONE [Suspect]
     Active Substance: RISPERIDONE
     Indication: Obsessive-compulsive symptom
     Dosage: 0.5 MILLIGRAM, DAILY
     Route: 065
  6. LAMOTRIGINE [Concomitant]
     Active Substance: LAMOTRIGINE
     Indication: Product used for unknown indication
     Dosage: 75 MILLIGRAM, BID
     Route: 065

REACTIONS (7)
  - Therapy partial responder [Unknown]
  - Drug ineffective [Unknown]
  - Extrapyramidal disorder [Recovering/Resolving]
  - Agitation [Recovering/Resolving]
  - Social avoidant behaviour [Recovering/Resolving]
  - Hypersomnia [Recovering/Resolving]
  - Anxiety [Unknown]
